FAERS Safety Report 8955020 (Version 1)
Quarter: 2012Q4

REPORT INFORMATION
  Report Type: 
  Country: ES (occurrence: ES)
  Receive Date: 20121210
  Receipt Date: 20121210
  Transmission Date: 20130627
  Serious: Yes (Death, Other)
  Sender: FDA-Public Use
  Company Number: ES-CELGENEUS-144-50794-12113851

PATIENT

DRUGS (3)
  1. VIDAZA [Suspect]
     Indication: MDS
     Route: 065
  2. VIDAZA [Suspect]
     Indication: ACUTE MYELOID LEUKEMIA
  3. VIDAZA [Suspect]
     Indication: CHRONIC MYELOMONOCYTIC LEUKEMIA

REACTIONS (6)
  - Death [Fatal]
  - Neutropenia [Unknown]
  - Pancytopenia [Unknown]
  - Polycythaemia [Unknown]
  - Dyspepsia [Unknown]
  - Injection site reaction [Unknown]
